FAERS Safety Report 19784524 (Version 2)
Quarter: 2021Q3

REPORT INFORMATION
  Report Type: Report from Study
  Country: GB (occurrence: GB)
  Receive Date: 20210903
  Receipt Date: 20210908
  Transmission Date: 20211014
  Serious: No
  Sender: FDA-Public Use
  Company Number: GB-SA-2021SA132874

PATIENT
  Age: 63 Year
  Sex: Male

DRUGS (3)
  1. NAPROXEN. [Concomitant]
     Active Substance: NAPROXEN
     Dosage: 500 MG, PRN
  2. BETAHISTINE DIHYDROCHLORIDE [Concomitant]
     Active Substance: BETAHISTINE
     Dosage: 8MG, ONCE/TWICE A DAY INHALERS
  3. DUPILUMAB [Suspect]
     Active Substance: DUPILUMAB
     Indication: DERMATITIS ATOPIC
     Dosage: 300 MG, QOW
     Route: 058
     Dates: start: 20190306

REACTIONS (4)
  - Visual impairment [Unknown]
  - Device breakage [Unknown]
  - Limb injury [Unknown]
  - Product use issue [Unknown]

NARRATIVE: CASE EVENT DATE: 20210412
